FAERS Safety Report 22535354 (Version 2)
Quarter: 2023Q2

REPORT INFORMATION
  Report Type: Spontaneous
  Country: US (occurrence: US)
  Receive Date: 20230608
  Receipt Date: 20230626
  Transmission Date: 20230722
  Serious: Yes (Hospitalization, Other)
  Sender: FDA-Public Use
  Company Number: US-LUPIN PHARMACEUTICALS INC.-2023-04345

PATIENT
  Age: 33 Year
  Sex: Male

DRUGS (7)
  1. OXYCODONE [Suspect]
     Active Substance: OXYCODONE
     Indication: Ureterolithiasis
     Dosage: 5 MILLIGRAM, TABLET
     Route: 042
  2. CEPHALEXIN [Suspect]
     Active Substance: CEPHALEXIN
     Indication: Ureterolithiasis
     Dosage: UNK
     Route: 065
  3. LEVOFLOXACIN [Suspect]
     Active Substance: LEVOFLOXACIN
     Indication: Pantoea agglomerans infection
     Dosage: UNK
     Route: 048
  4. LEVOFLOXACIN [Suspect]
     Active Substance: LEVOFLOXACIN
     Indication: Bacteraemia
  5. HYDROXYZINE [Concomitant]
     Active Substance: HYDROXYZINE HYDROCHLORIDE
     Indication: Ureterolithiasis
     Dosage: UNK
     Route: 065
  6. TAMSULOSIN [Concomitant]
     Active Substance: TAMSULOSIN
     Indication: Ureterolithiasis
     Dosage: UNK
     Route: 065
  7. PROMETHAZINE [Concomitant]
     Active Substance: PROMETHAZINE HYDROCHLORIDE
     Indication: Ureterolithiasis
     Dosage: UNK
     Route: 065

REACTIONS (7)
  - Pyrexia [Recovered/Resolved]
  - Pantoea agglomerans infection [Unknown]
  - Enterobacter bacteraemia [Unknown]
  - Wrong technique in product usage process [Unknown]
  - Incorrect route of product administration [Unknown]
  - Enterobacter sepsis [Unknown]
  - Off label use [Unknown]
